FAERS Safety Report 9500973 (Version 1)
Quarter: 2013Q3

REPORT INFORMATION
  Report Type: Spontaneous
  Country: GB (occurrence: GB)
  Receive Date: 20130905
  Receipt Date: 20130905
  Transmission Date: 20140515
  Serious: Yes (Hospitalization, Other)
  Sender: FDA-Public Use
  Company Number: PHHY2013GB094664

PATIENT
  Age: 88 Year
  Sex: Male

DRUGS (8)
  1. AMOXICILLIN [Suspect]
     Indication: URINARY TRACT INFECTION
     Dosage: 250 MG, TID
     Route: 048
     Dates: start: 201206
  2. WARFARIN [Concomitant]
  3. SERETIDE [Concomitant]
     Route: 055
  4. TAMSULOSIN [Concomitant]
  5. SPIRONOLACTONE [Concomitant]
     Dosage: 12.5 MG, ALTERNATE DAYS.
  6. SPIRIVA [Concomitant]
     Dosage: 1 DF, QD
  7. ATORVASTATIN [Concomitant]
     Dosage: 20 MG, QD TAKEN AT NIGHT.
  8. RAMIPRIL [Concomitant]

REACTIONS (2)
  - International normalised ratio increased [Recovered/Resolved]
  - Treatment failure [Recovered/Resolved]
